FAERS Safety Report 7443077-1 (Version None)
Quarter: 2011Q2

REPORT INFORMATION
  Report Type: 
  Country: None (occurrence: None)
  Receive Date: 20110428
  Receipt Date: 20110415
  Transmission Date: 20111010
  Serious: Yes (Hospitalization, Other)
  Sender: FDA-Public Use
  Company Number: US-CELGENEUS-163-21880-11022574

PATIENT
  Sex: Female
  Weight: 62.1 kg

DRUGS (7)
  1. CRESTOR [Concomitant]
     Dosage: 10 MILLIGRAM
     Route: 065
  2. REVLIMID [Suspect]
     Indication: MULTIPLE MYELOMA
     Dosage: 25 MILLIGRAM
     Route: 048
     Dates: start: 20100524, end: 20110203
  3. REVLIMID [Suspect]
     Dosage: 25 MILLIGRAM
     Route: 048
     Dates: start: 20110401
  4. NORVASC [Concomitant]
     Dosage: 10 MILLIGRAM
     Route: 065
  5. DEXAMETHASONE [Concomitant]
     Dosage: 4 MILLIGRAM
     Route: 065
  6. AMIDIPINE [Concomitant]
     Dosage: 10 MILLIGRAM
     Route: 065
  7. SODIUM BICARBONATE [Concomitant]
     Dosage: 650 MILLIGRAM
     Route: 048

REACTIONS (5)
  - ASTHENIA [None]
  - DEHYDRATION [None]
  - INFLUENZA [None]
  - PNEUMONIA [None]
  - RENAL FAILURE ACUTE [None]
